FAERS Safety Report 7426384-8 (Version None)
Quarter: 2011Q2

REPORT INFORMATION
  Report Type: 
  Country: None (occurrence: None)
  Receive Date: 20110420
  Receipt Date: 20110414
  Transmission Date: 20111010
  Serious: Yes (Hospitalization)
  Sender: FDA-Public Use
  Company Number: US-B.I. PHARMACEUTICALS,INC./RIDGEFIELD-2011-BP-04775BP

PATIENT
  Sex: Male

DRUGS (19)
  1. COREG [Concomitant]
     Indication: CARDIAC DISORDER
     Dosage: 37.5 MG
  2. LOVAZA [Concomitant]
     Dosage: 4000 MG
  3. OMNARIS [Concomitant]
     Dosage: 2 PUF
  4. PRADAXA [Suspect]
     Indication: TRANSIENT ISCHAEMIC ATTACK
  5. VYTORIN/ZETIA [Concomitant]
     Indication: BLOOD CHOLESTEROL INCREASED
  6. ZANTAC [Concomitant]
     Indication: PROPHYLAXIS
     Dosage: 300 MG
  7. MICARDIS [Concomitant]
     Indication: HYPERTENSION
     Dosage: 40 MG
     Dates: start: 20110101
  8. LIDODERM [Concomitant]
  9. PRADAXA [Suspect]
     Indication: ATRIAL FIBRILLATION
  10. PRADAXA [Suspect]
     Indication: CARDIOMYOPATHY
  11. VITAMINS [Concomitant]
     Indication: PROPHYLAXIS
  12. B12 WITH FOLIC ACID [Concomitant]
  13. PRADAXA [Suspect]
     Indication: ANTICOAGULANT THERAPY
     Dosage: 300 MG
     Route: 048
     Dates: start: 20110202
  14. RENAX [Concomitant]
     Indication: CARDIAC DISORDER
     Dosage: 1000 MG
  15. LISINOPRIL [Concomitant]
     Indication: HYPERTENSION
     Dosage: 40 MG
  16. FEXMID [Concomitant]
     Dosage: 7.5 MG
  17. PLAVIX [Concomitant]
     Indication: ANTICOAGULANT THERAPY
     Dosage: 75 MG
  18. ANTARA (MICRONIZED) [Concomitant]
     Dosage: 130 MG
  19. COREG [Concomitant]
     Dosage: 25 MG

REACTIONS (2)
  - GASTROINTESTINAL HAEMORRHAGE [None]
  - MELAENA [None]
